FAERS Safety Report 8264994-9 (Version None)
Quarter: 2012Q2

REPORT INFORMATION
  Report Type: 
  Country: None (occurrence: None)
  Receive Date: 20120406
  Receipt Date: 20120403
  Transmission Date: 20120825
  Serious: Yes (Other)
  Sender: FDA-Public Use
  Company Number: JP-EISAI INC-E2090-01998-SPO-JP

PATIENT
  Sex: Female

DRUGS (13)
  1. ZONISAMIDE [Suspect]
     Indication: PARKINSON'S DISEASE
     Route: 048
     Dates: start: 20101119, end: 20110820
  2. REQUIP [Concomitant]
     Route: 048
     Dates: start: 20101007, end: 20110913
  3. REQUIP [Concomitant]
     Route: 048
     Dates: start: 20100615, end: 20100813
  4. MENEST [Concomitant]
     Route: 048
     Dates: start: 20101125
  5. SYMMETREL [Concomitant]
     Indication: DYSKINESIA
     Route: 048
     Dates: start: 20101125
  6. PRAMIPEXOLE DIHYDROCHLORIDE [Concomitant]
     Indication: MOVEMENT DISORDER
     Route: 048
     Dates: start: 20070921, end: 20100419
  7. MENEST [Concomitant]
     Indication: MOVEMENT DISORDER
     Route: 048
     Dates: start: 20070921, end: 20101124
  8. REQUIP [Concomitant]
     Route: 048
     Dates: start: 20110914, end: 20111201
  9. REQUIP [Concomitant]
     Route: 048
     Dates: start: 20111202, end: 20120109
  10. SELEGILINE HCL [Suspect]
     Indication: PARKINSON'S DISEASE
     Dosage: 5 MG
     Route: 048
     Dates: start: 20070921, end: 20110820
  11. REQUIP [Concomitant]
     Indication: MOVEMENT DISORDER
     Route: 048
     Dates: start: 20100420, end: 20100614
  12. REQUIP [Concomitant]
     Route: 048
     Dates: start: 20100814, end: 20110913
  13. REQUIP [Concomitant]
     Route: 048
     Dates: start: 20120110

REACTIONS (2)
  - NEUROLEPTIC MALIGNANT SYNDROME [None]
  - HALLUCINATION, VISUAL [None]
